FAERS Safety Report 6016919-4 (Version None)
Quarter: 2008Q4

REPORT INFORMATION
  Report Type: 
  Country: None (occurrence: None)
  Receive Date: 20081218
  Receipt Date: 20081211
  Transmission Date: 20090506
  Serious: Yes (Other)
  Sender: FDA-Public Use
  Company Number: CHPA2008US22172

PATIENT
  Age: 9 Year
  Sex: Male
  Weight: 27.2 kg

DRUGS (1)
  1. TRIAMINIC THIN STRIPS-LONG ACTING COUGH (NCH)(DEXTROMETHORPHAN HYDROBR [Suspect]
     Dosage: ORAL
     Route: 048
     Dates: start: 20081209, end: 20081209

REACTIONS (1)
  - OEDEMA PERIPHERAL [None]
